FAERS Safety Report 5070313-1 (Version None)
Quarter: 2006Q3

REPORT INFORMATION
  Report Type: 
  Country: None (occurrence: None)
  Receive Date: 20060731
  Receipt Date: 20060720
  Transmission Date: 20061208
  Serious: Yes (Hospitalization)
  Sender: FDA-Public Use
  Company Number: 2006BL003513

PATIENT
  Age: 65 Year
  Sex: Female

DRUGS (2)
  1. CARTEOLOL HYDROCHLORIDE [Suspect]
     Indication: GLAUCOMA
     Dosage: 1 DROP;DAILY;OPHTHALMIC
     Route: 047
     Dates: start: 20040527, end: 20060706
  2. CARTEOLOL HYDROCHLORIDE [Suspect]
     Indication: GLAUCOMA
     Dosage: 1 DROP;DAILY;OPHTHALMIC
     Route: 047
     Dates: start: 20040527, end: 20060706

REACTIONS (5)
  - AMYOTROPHY [None]
  - HYPOAESTHESIA [None]
  - MENINGIOMA [None]
  - MUSCULAR WEAKNESS [None]
  - PERIPHERAL COLDNESS [None]
